FAERS Safety Report 22247164 (Version 1)
Quarter: 2023Q2

REPORT INFORMATION
  Report Type: Spontaneous
  Country: US (occurrence: US)
  Receive Date: 20230424
  Receipt Date: 20230424
  Transmission Date: 20230721
  Serious: No
  Sender: FDA-Public Use
  Company Number: US-tianyaoyaoye-2022-tjpc-000005

PATIENT
  Sex: Male

DRUGS (2)
  1. METHYLPREDNISOLONE [Suspect]
     Active Substance: METHYLPREDNISOLONE
     Indication: Bronchitis chronic
     Dosage: ON 03 NOV 2022 , HE CONSUMED HIS FIRST 03 TABLETS , BUT HE MISSED CONSUMING 02 TABLETS IN THE NIG...
     Route: 048
     Dates: start: 20221103
  2. LOSARTAN [Concomitant]
     Active Substance: LOSARTAN
     Indication: Hypertension

REACTIONS (1)
  - Product dose omission issue [Unknown]

NARRATIVE: CASE EVENT DATE: 20221103
